FAERS Safety Report 7435501-5 (Version None)
Quarter: 2011Q2

REPORT INFORMATION
  Report Type: 
  Country: None (occurrence: None)
  Receive Date: 20110418
  Receipt Date: 20110405
  Transmission Date: 20111010
  Serious: Yes (Hospitalization, Other)
  Sender: FDA-Public Use
  Company Number: TRP_07581_2011

PATIENT
  Sex: Male
  Weight: 118 kg

DRUGS (10)
  1. PROCRIT /00909301/ [Concomitant]
  2. INFERGEN [Suspect]
     Indication: HEPATITIS C
     Dosage: (15 ?G QD SUBCUTANEOUS)
     Route: 058
     Dates: start: 20101116, end: 20110212
  3. NORVASC [Concomitant]
  4. LEVEMIR [Concomitant]
  5. NOVOLOG [Concomitant]
  6. LABETALOL [Concomitant]
  7. NAPROXEN [Concomitant]
  8. RIBAVIRIN [Suspect]
     Indication: HEPATITIS C
     Dosage: (600 MG BID ORAL)
     Route: 048
     Dates: start: 20101116, end: 20110207
  9. CLONIDINE [Concomitant]
  10. GABAPENTIN [Concomitant]

REACTIONS (13)
  - GASTRITIS [None]
  - HAEMATOCRIT DECREASED [None]
  - ALANINE AMINOTRANSFERASE INCREASED [None]
  - BLOOD POTASSIUM DECREASED [None]
  - PNEUMONIA [None]
  - DUODENITIS [None]
  - HAEMOGLOBIN DECREASED [None]
  - BLOOD PRESSURE SYSTOLIC INCREASED [None]
  - HIATUS HERNIA [None]
  - RENAL FAILURE ACUTE [None]
  - ASPARTATE AMINOTRANSFERASE INCREASED [None]
  - WHITE BLOOD CELL COUNT DECREASED [None]
  - BLOOD GLUCOSE INCREASED [None]
